FAERS Safety Report 6505981-8 (Version None)
Quarter: 2009Q4

REPORT INFORMATION
  Report Type: 
  Country: None (occurrence: None)
  Receive Date: 20091218
  Receipt Date: 20091207
  Transmission Date: 20100525
  Serious: Yes (Other)
  Sender: FDA-Public Use
  Company Number: US-PFIZER INC-2009310289

PATIENT
  Sex: Female
  Weight: 96.145 kg

DRUGS (16)
  1. GEODON [Suspect]
     Indication: DEPRESSION
     Dosage: 20 MG, 2X/DAY
     Route: 048
     Dates: start: 20091201
  2. INSULIN [Concomitant]
     Indication: DIABETES MELLITUS
     Dosage: UNK
  3. CYMBALTA [Concomitant]
     Dosage: UNK
  4. CLONAZEPAM [Concomitant]
     Dosage: UNK
  5. GLIMEPIRIDE [Concomitant]
     Dosage: UNK
  6. ESOMEPRAZOLE [Concomitant]
     Dosage: UNK
  7. PREDNISONE [Concomitant]
     Dosage: UNK
  8. PRIMIDONE [Concomitant]
     Dosage: UNK
  9. SPIRIVA [Concomitant]
     Dosage: UNK
  10. SULAR [Concomitant]
     Dosage: UNK
  11. TRICOR [Concomitant]
     Dosage: UNK
  12. XOPENEX [Concomitant]
     Dosage: UNK
  13. ZOCOR [Concomitant]
     Dosage: UNK
  14. XANAX [Concomitant]
     Dosage: UNK
  15. SYMBICORT [Concomitant]
     Dosage: UNK
  16. VICODIN [Concomitant]
     Dosage: UNK

REACTIONS (7)
  - BLOOD GLUCOSE INCREASED [None]
  - CHILLS [None]
  - FEELING ABNORMAL [None]
  - SPEECH DISORDER [None]
  - THINKING ABNORMAL [None]
  - TREMOR [None]
  - UNEVALUABLE EVENT [None]
